FAERS Safety Report 6014396-0 (Version None)
Quarter: 2008Q4

REPORT INFORMATION
  Report Type: 
  Country: None (occurrence: None)
  Receive Date: 20081219
  Receipt Date: 20080825
  Transmission Date: 20090506
  Serious: No
  Sender: FDA-Public Use
  Company Number: A0730183A

PATIENT
  Age: 66 Year
  Sex: Male

DRUGS (3)
  1. AVODART [Suspect]
     Indication: BENIGN PROSTATIC HYPERPLASIA
     Dosage: .5MG PER DAY
     Route: 048
     Dates: start: 20071201, end: 20080525
  2. TERAZOSIN HCL [Concomitant]
  3. LOVASTATIN [Concomitant]

REACTIONS (6)
  - AXILLARY PAIN [None]
  - BREAST ENLARGEMENT [None]
  - MUSCULOSKELETAL PAIN [None]
  - NIPPLE DISORDER [None]
  - NIPPLE PAIN [None]
  - PRODUCT QUALITY ISSUE [None]
